FAERS Safety Report 17282440 (Version 11)
Quarter: 2021Q1

REPORT INFORMATION
  Report Type: Report from Study
  Country: US (occurrence: US)
  Receive Date: 20200117
  Receipt Date: 20210126
  Transmission Date: 20210419
  Serious: Yes (Hospitalization, Disabling)
  Sender: FDA-Public Use
  Company Number: US-ROCHE-2525152

PATIENT
  Age: 66 Year
  Sex: Female
  Weight: 43.4 kg

DRUGS (56)
  1. FENTANYL. [Concomitant]
     Active Substance: FENTANYL
     Indication: SEDATIVE THERAPY
     Route: 048
     Dates: start: 20191201
  2. SODIUM CHLORIDE. [Concomitant]
     Active Substance: SODIUM CHLORIDE
     Route: 042
     Dates: start: 20191201, end: 20191218
  3. LEVETIRACETAM. [Concomitant]
     Active Substance: LEVETIRACETAM
     Indication: GASTROOESOPHAGEAL REFLUX DISEASE
     Route: 042
     Dates: start: 20191130, end: 20191130
  4. PEPCID [Concomitant]
     Active Substance: FAMOTIDINE
     Route: 042
     Dates: start: 20191130, end: 20191130
  5. PERIOGARD [Concomitant]
     Active Substance: CHLORHEXIDINE GLUCONATE
     Indication: DENTAL DISORDER PROPHYLAXIS
     Route: 048
     Dates: start: 20191219, end: 20191220
  6. NORCO [Concomitant]
     Active Substance: ACETAMINOPHEN\HYDROCODONE BITARTRATE
     Indication: PAIN
     Route: 048
     Dates: start: 20191114
  7. SUBLIMAZE [Concomitant]
     Active Substance: FENTANYL CITRATE
     Indication: SEDATIVE THERAPY
     Route: 042
     Dates: start: 20191130, end: 20191130
  8. PRILOSEC [Concomitant]
     Active Substance: OMEPRAZOLE MAGNESIUM
     Indication: GASTROOESOPHAGEAL REFLUX DISEASE
     Route: 048
     Dates: start: 20190214
  9. TENECTEPLASE [Suspect]
     Active Substance: TENECTEPLASE
     Indication: THROMBOLYSIS
     Dosage: DOSE CONCENTRATION 5 MG/ML?MOST RECENT DOSE OF TENECTEPLASE 2.3 ML PRIOR TO AE 30/NOV/2019 STARTED A
     Route: 042
  10. OFIRMEV [Concomitant]
     Active Substance: ACETAMINOPHEN
     Indication: PAIN
     Route: 042
     Dates: start: 20191201, end: 20191203
  11. KEPPRA [Concomitant]
     Active Substance: LEVETIRACETAM
     Indication: GASTROOESOPHAGEAL REFLUX DISEASE
     Route: 048
     Dates: start: 20191201, end: 20191202
  12. MELATONIN [Concomitant]
     Active Substance: MELATONIN
     Indication: INSOMNIA
     Route: 048
     Dates: start: 20191201, end: 20191205
  13. METOCLOPRAMIDE. [Concomitant]
     Active Substance: METOCLOPRAMIDE
     Indication: NAUSEA
     Route: 042
     Dates: start: 20191207, end: 20191208
  14. METOCLOPRAMIDE. [Concomitant]
     Active Substance: METOCLOPRAMIDE
     Indication: VOMITING
  15. ATORVASTATIN [Concomitant]
     Active Substance: ATORVASTATIN
     Indication: NEOPLASM MALIGNANT
     Route: 048
     Dates: start: 20191201
  16. POTASSIUM CHLORIDE. [Concomitant]
     Active Substance: POTASSIUM CHLORIDE
     Indication: NUTRITIONAL SUPPLEMENTATION
     Dosage: 40.00 OTHER FOR DIETARY SUPPLEMENT
     Route: 048
     Dates: start: 20191204, end: 20191204
  17. REGLAN [Concomitant]
     Active Substance: METOCLOPRAMIDE HYDROCHLORIDE
     Indication: VOMITING
  18. PREVNAR 13 [Concomitant]
     Active Substance: PNEUMOCOCCAL 13-VALENT CONJUGATE VACCINE
     Indication: IMMUNISATION
     Dosage: FOR VACCINATION.
     Route: 030
     Dates: start: 20191205, end: 20191205
  19. TYLENOL [Concomitant]
     Active Substance: ACETAMINOPHEN
     Indication: PAIN
     Route: 048
     Dates: start: 20191207, end: 20191220
  20. PRILOSEC [Concomitant]
     Active Substance: OMEPRAZOLE MAGNESIUM
     Indication: NEOPLASM MALIGNANT
     Route: 048
     Dates: start: 20190214
  21. ASPIRIN. [Concomitant]
     Active Substance: ASPIRIN
     Indication: CEREBROVASCULAR ACCIDENT
     Route: 048
     Dates: start: 20191203, end: 20191203
  22. PEPCID [Concomitant]
     Active Substance: FAMOTIDINE
     Dosage: FOR GI
     Route: 042
     Dates: start: 20191130, end: 20191130
  23. PEPCID [Concomitant]
     Active Substance: FAMOTIDINE
     Route: 048
     Dates: start: 20191201
  24. FENTANYL. [Concomitant]
     Active Substance: FENTANYL
     Indication: SEDATIVE THERAPY
     Dosage: 25.00 OTHER
     Route: 042
     Dates: start: 20191130, end: 20191130
  25. LIPITOR [Concomitant]
     Active Substance: ATORVASTATIN CALCIUM
     Indication: NEOPLASM MALIGNANT
     Route: 048
     Dates: start: 20191201
  26. RESTORIL [Concomitant]
     Active Substance: TEMAZEPAM
     Route: 048
     Dates: start: 20190717, end: 20191207
  27. DULCOLAX (BISACODYL) [Concomitant]
     Active Substance: BISACODYL
     Dosage: FOR LAXATIVE
     Route: 048
     Dates: start: 20191207, end: 20191210
  28. SODIUM CHLORIDE. [Concomitant]
     Active Substance: SODIUM CHLORIDE
     Dosage: 125.00 OTHER
     Route: 042
     Dates: start: 20191130, end: 20191130
  29. ASPIRIN. [Concomitant]
     Active Substance: ASPIRIN
     Route: 048
     Dates: start: 20191204, end: 20191210
  30. PEPCID [Concomitant]
     Active Substance: FAMOTIDINE
     Route: 048
     Dates: start: 20190131
  31. COLACE [Concomitant]
     Active Substance: DOCUSATE SODIUM
     Route: 048
     Dates: start: 20191201, end: 20191220
  32. PEPCID [Concomitant]
     Active Substance: FAMOTIDINE
     Route: 042
     Dates: start: 20191207, end: 20191208
  33. PEPCID [Concomitant]
     Active Substance: FAMOTIDINE
     Route: 048
     Dates: start: 20190131
  34. ZOFRAN [Concomitant]
     Active Substance: ONDANSETRON HYDROCHLORIDE
     Dosage: FOR RADIATION THERAPY INDUCED NAUSEA
     Route: 048
     Dates: start: 20191115
  35. ISOPTIN [Concomitant]
     Active Substance: VERAPAMIL HYDROCHLORIDE
     Indication: THROMBECTOMY
     Route: 042
     Dates: start: 20191130, end: 20191130
  36. ENOXAPARIN [Concomitant]
     Active Substance: ENOXAPARIN
     Route: 058
     Dates: start: 20191219
  37. SODIUM CHLORIDE. [Concomitant]
     Active Substance: SODIUM CHLORIDE
     Dosage: FOR ELECTROLYTE REPLENISHMENT
     Route: 042
     Dates: start: 20191130, end: 20191130
  38. MIDAZOLAM. [Concomitant]
     Active Substance: MIDAZOLAM
     Indication: THROMBECTOMY
     Route: 042
     Dates: start: 20191130, end: 20191130
  39. VERAPAMIL [Concomitant]
     Active Substance: VERAPAMIL HYDROCHLORIDE
     Indication: THROMBECTOMY
     Route: 042
     Dates: start: 20191130, end: 20191130
  40. KEPPRA [Concomitant]
     Active Substance: LEVETIRACETAM
     Route: 042
     Dates: start: 20191130, end: 20191130
  41. SUBLIMAZE [Concomitant]
     Active Substance: FENTANYL CITRATE
     Route: 048
     Dates: start: 20191201
  42. CHLORHEXIDINE GLUCONATE. [Concomitant]
     Active Substance: CHLORHEXIDINE GLUCONATE
     Route: 048
     Dates: start: 20191219, end: 20191220
  43. K PHOS NEUTRAL [Concomitant]
     Active Substance: POTASSIUM PHOSPHATE, MONOBASIC\SODIUM PHOSPHATE, DIBASIC, ANHYDROUS\SODIUM PHOSPHATE, MONOBASIC, MONOHYDRATE
     Indication: NUTRITIONAL SUPPLEMENTATION
     Dosage: 1.00 OTHER FOR DIETARY SUPPLEMENT
     Route: 048
     Dates: start: 20191202, end: 20191202
  44. MELATONIN [Concomitant]
     Active Substance: MELATONIN
     Route: 060
     Dates: start: 20191209, end: 20191210
  45. PEPCID [Concomitant]
     Active Substance: FAMOTIDINE
     Route: 048
     Dates: start: 20191208, end: 20191210
  46. PEPCID [Concomitant]
     Active Substance: FAMOTIDINE
     Route: 048
     Dates: start: 20191201
  47. RESTORIL [Concomitant]
     Active Substance: TEMAZEPAM
     Dosage: FOR SLEEP AID
     Route: 048
     Dates: start: 20190717, end: 20191207
  48. PRILOSEC [Concomitant]
     Active Substance: OMEPRAZOLE MAGNESIUM
     Indication: GASTROOESOPHAGEAL REFLUX DISEASE
  49. PERIDEX [Concomitant]
     Active Substance: CHLORHEXIDINE GLUCONATE
  50. FENTANYL. [Concomitant]
     Active Substance: FENTANYL
     Route: 042
     Dates: start: 20191130, end: 20191130
  51. PEPCID [Concomitant]
     Active Substance: FAMOTIDINE
     Route: 042
     Dates: start: 20191207, end: 20191208
  52. ACETAMINOPHEN. [Concomitant]
     Active Substance: ACETAMINOPHEN
     Indication: TROPONIN INCREASED
     Route: 048
     Dates: start: 20191201, end: 20191203
  53. CALCIUM GLUCONATE. [Concomitant]
     Active Substance: CALCIUM GLUCONATE
     Route: 042
     Dates: start: 20191218, end: 20191218
  54. REGLAN [Concomitant]
     Active Substance: METOCLOPRAMIDE HYDROCHLORIDE
     Indication: NAUSEA
     Route: 042
     Dates: start: 20191207, end: 20191208
  55. BISACODYL. [Concomitant]
     Active Substance: BISACODYL
     Indication: LAXATIVE SUPPORTIVE CARE
     Route: 048
     Dates: start: 20191207, end: 20191210
  56. ZOFRAN [Concomitant]
     Active Substance: ONDANSETRON HYDROCHLORIDE
     Indication: NAUSEA
     Route: 048
     Dates: start: 20191115

REACTIONS (5)
  - Pulmonary embolism [Not Recovered/Not Resolved]
  - Deep vein thrombosis [Not Recovered/Not Resolved]
  - Embolic stroke [Recovered/Resolved]
  - Seizure [Recovered/Resolved]
  - Anaemia [Recovering/Resolving]

NARRATIVE: CASE EVENT DATE: 20191201
